FAERS Safety Report 18460502 (Version 1)
Quarter: 2020Q4

REPORT INFORMATION
  Report Type: Spontaneous
  Country: US (occurrence: US)
  Receive Date: 20201103
  Receipt Date: 20201103
  Transmission Date: 20210114
  Serious: No
  Sender: FDA-Public Use
  Company Number: US-LUPIN PHARMACEUTICALS INC.-2020-08063

PATIENT
  Age: 9 Year
  Sex: Female

DRUGS (10)
  1. IMMUNOGLOBULIN [IMMUNOGLOBULINS NOS] [Concomitant]
     Active Substance: IMMUNE GLOBULIN NOS
     Indication: TRISOMY 21
     Dosage: UNK
     Route: 042
  2. METHYLPREDNISOLONE. [Suspect]
     Active Substance: METHYLPREDNISOLONE
     Indication: TRISOMY 21
     Dosage: UNK
     Route: 042
  3. METHYLPREDNISOLONE. [Suspect]
     Active Substance: METHYLPREDNISOLONE
     Indication: AUTISM SPECTRUM DISORDER
  4. IMMUNOGLOBULIN [IMMUNOGLOBULINS NOS] [Concomitant]
     Active Substance: IMMUNE GLOBULIN NOS
     Indication: AUTISM SPECTRUM DISORDER
  5. RITUXIMAB. [Concomitant]
     Active Substance: RITUXIMAB
     Indication: TRISOMY 21
     Dosage: UNK
     Route: 065
  6. TOCILIZUMAB. [Concomitant]
     Active Substance: TOCILIZUMAB
     Indication: TRISOMY 21
     Dosage: UNK
     Route: 042
  7. TOCILIZUMAB. [Concomitant]
     Active Substance: TOCILIZUMAB
     Indication: AUTISM SPECTRUM DISORDER
  8. RITUXIMAB. [Concomitant]
     Active Substance: RITUXIMAB
     Indication: AUTISM SPECTRUM DISORDER
  9. MYCOPHENOLATE [Concomitant]
     Active Substance: MYCOPHENOLIC ACID
     Indication: TRISOMY 21
     Dosage: UNK
     Route: 065
  10. MYCOPHENOLATE [Concomitant]
     Active Substance: MYCOPHENOLIC ACID
     Indication: AUTISM SPECTRUM DISORDER

REACTIONS (1)
  - Off label use [Unknown]
